FAERS Safety Report 5095643-9 (Version None)
Quarter: 2006Q3

REPORT INFORMATION
  Report Type: 
  Country: None (occurrence: None)
  Receive Date: 20060731
  Receipt Date: 20060426
  Transmission Date: 20061208
  Serious: No
  Sender: FDA-Public Use
  Company Number: 2006PV012804

PATIENT
  Age: 46 Year
  Sex: Male

DRUGS (1)
  1. BYETTA [Suspect]
     Indication: DIABETES MELLITUS NON-INSULIN-DEPENDENT
     Dosage: 5 MCG;BID;SC
     Route: 058
     Dates: start: 20060225

REACTIONS (4)
  - INJECTION SITE BRUISING [None]
  - INJECTION SITE PAIN [None]
  - INJECTION SITE PRURITUS [None]
  - RASH [None]
